FAERS Safety Report 4543132-X (Version None)
Quarter: 2004Q4

REPORT INFORMATION
  Report Type: 
  Country: None (occurrence: None)
  Receive Date: 20041229
  Receipt Date: 20041220
  Transmission Date: 20050328
  Serious: Yes (Other)
  Sender: FDA-Public Use
  Company Number: TPG2004A00337

PATIENT
  Age: 68 Year
  Sex: Male

DRUGS (4)
  1. ACTOS [Suspect]
     Indication: DIABETES MELLITUS
     Dosage: 30 MG (30 MG 1 IN 1 D)
     Route: 048
     Dates: start: 20040714, end: 20041115
  2. MEDYN (TRIOBE) [Concomitant]
  3. IBUPROFEN [Concomitant]
  4. AMOXICILLIN [Concomitant]

REACTIONS (2)
  - APLASTIC ANAEMIA [None]
  - DRUG TOXICITY [None]
